FAERS Safety Report 8278593-6 (Version None)
Quarter: 2012Q2

REPORT INFORMATION
  Report Type: 
  Country: None (occurrence: None)
  Receive Date: 20120412
  Receipt Date: 20120405
  Transmission Date: 20120825
  Serious: Yes (Death)
  Sender: FDA-Public Use
  Company Number: US-AMGEN-USASP2011001620

PATIENT
  Age: 69 Year
  Sex: Female
  Weight: 100.23 kg

DRUGS (22)
  1. SENSIPAR [Suspect]
     Indication: HYPERPARATHYROIDISM SECONDARY
     Dosage: 30 MG, UNK
     Route: 048
  2. ASPIRIN [Concomitant]
  3. OXYGEN [Concomitant]
  4. CARAFATE [Concomitant]
  5. TOPROL-XL [Concomitant]
  6. LIPITOR [Concomitant]
  7. LISINOPRIL [Concomitant]
  8. COUMADIN [Concomitant]
  9. MAGNESIUM [Concomitant]
  10. SULFAMETHOXAZOLE AND TRIMETHOPRIM [Concomitant]
  11. XANAX [Concomitant]
  12. ACETAMINOPHEN W/ CODEINE [Concomitant]
  13. LEXAPRO [Concomitant]
  14. LEVOXYL [Concomitant]
  15. PACERONE [Concomitant]
  16. DOCUSATE SODIUM [Concomitant]
  17. MIDODRINE HYDROCHLORIDE [Concomitant]
  18. RENAGEL [Concomitant]
  19. COLCHICINE [Concomitant]
  20. PROTONIX [Concomitant]
  21. DARVOCET [Concomitant]
     Dosage: 100 UNK, UNK
  22. METOPROLOL SUCCINATE [Concomitant]

REACTIONS (1)
  - DEATH [None]
